FAERS Safety Report 18329159 (Version 1)
Quarter: 2020Q3

REPORT INFORMATION
  Report Type: Spontaneous
  Country: US (occurrence: US)
  Receive Date: 20200930
  Receipt Date: 20200930
  Transmission Date: 20201103
  Serious: Yes (Hospitalization, Other)
  Sender: FDA-Public Use
  Company Number: US-MSNLABS-2020MSNLIT00361

PATIENT
  Age: 54 Year
  Sex: Male

DRUGS (10)
  1. CLOPIDOGREL [Concomitant]
     Active Substance: CLOPIDOGREL BISULFATE
     Dosage: UNKNOWN
     Route: 065
  2. PREDNISONE. [Interacting]
     Active Substance: PREDNISONE
     Indication: ACUTE MYOCARDIAL INFARCTION
     Route: 048
  3. METOPROLOL. [Concomitant]
     Active Substance: METOPROLOL
     Dosage: UNKNOWN
     Route: 065
  4. METHYLPREDNISOLONE. [Interacting]
     Active Substance: METHYLPREDNISOLONE
     Route: 042
  5. INTRAVENOUS IMMUNOGLOBULIN [Interacting]
     Active Substance: HUMAN IMMUNOGLOBULIN G
     Indication: MYOPATHY
     Dosage: 2G/KG FOR 5 DAYS
     Route: 042
  6. RITUXIMAB. [Interacting]
     Active Substance: RITUXIMAB
     Indication: IMMUNE-MEDIATED MYOSITIS
     Route: 065
  7. TICAGRELOR. [Concomitant]
     Active Substance: TICAGRELOR
     Dosage: UNKNOWN
     Route: 065
  8. PREDNISONE. [Interacting]
     Active Substance: PREDNISONE
     Route: 048
  9. ATORVASTATIN TABLETS 40MG [Suspect]
     Active Substance: ATORVASTATIN
     Indication: ACUTE MYOCARDIAL INFARCTION
     Route: 065
  10. METHYLPREDNISOLONE. [Interacting]
     Active Substance: METHYLPREDNISOLONE
     Indication: IMMUNE-MEDIATED MYOSITIS
     Route: 065

REACTIONS (3)
  - Immune-mediated myositis [Recovered/Resolved]
  - Dysphagia [Recovered/Resolved]
  - Gait inability [Recovered/Resolved]
